FAERS Safety Report 7221015-4 (Version None)
Quarter: 2011Q1

REPORT INFORMATION
  Report Type: 
  Country: None (occurrence: None)
  Receive Date: 20110112
  Receipt Date: 20110110
  Transmission Date: 20110831
  Serious: Yes (Death, Life-Threatening, Hospitalization)
  Sender: FDA-Public Use
  Company Number: FR-PFIZER INC-2011000254

PATIENT
  Age: 36 Year
  Sex: Male

DRUGS (27)
  1. LAROXYL [Suspect]
     Dosage: 25 MG, 2X/DAY
     Route: 048
     Dates: start: 20091109, end: 20091111
  2. EFFERALGAN [Concomitant]
     Dosage: UNK
     Dates: start: 20091110, end: 20091113
  3. NEUPOGEN [Concomitant]
     Dosage: UNK
     Dates: start: 20091111, end: 20091111
  4. AUGMENTIN '125' [Suspect]
     Dosage: UNK
     Route: 048
     Dates: start: 20091101
  5. LAROXYL [Suspect]
     Dosage: 50 MG, 1X/DAY
     Route: 048
     Dates: start: 20091110, end: 20091111
  6. CONTRAMAL [Suspect]
     Indication: PAIN
     Dosage: 150 MG, UNK
     Route: 048
     Dates: start: 20091113, end: 20091113
  7. OXYCODONE HCL [Concomitant]
     Dosage: UNK
     Dates: start: 20091109, end: 20091110
  8. NEURONTIN [Suspect]
     Dosage: 800 MG, 3X/DAY
     Route: 048
     Dates: start: 20091109, end: 20091113
  9. LIDOCAINE [Concomitant]
     Dosage: UNK
     Dates: start: 20091110, end: 20091111
  10. NEUPOGEN [Concomitant]
     Dosage: UNK
     Dates: start: 20091111, end: 20091113
  11. CIPROFLOXACIN HYDROCHLORIDE [Suspect]
     Dosage: 500 MG, 1X/DAY
     Route: 048
     Dates: start: 20091101
  12. CARBOPLATIN [Suspect]
     Indication: EXTRAGONADAL PRIMARY GERM CELL TUMOUR MIXED STAGE I
     Dosage: 1300 MG, 1X/DAY
     Route: 042
     Dates: start: 20091109, end: 20091111
  13. GLUCOSE/POTASSIUM CHLORIDE/SODIUM CHLORIDE/SODIUM LACTATE [Concomitant]
     Dosage: UNK
     Dates: start: 20091109, end: 20091113
  14. LEXOMIL [Concomitant]
     Dosage: UNK
     Dates: start: 20091109, end: 20091113
  15. ZOPHREN [Concomitant]
     Dosage: UNK
     Dates: start: 20091110, end: 20091113
  16. TRIFLUCAN [Suspect]
     Dosage: 50 MG, 1X/DAY
     Route: 048
     Dates: start: 20091101
  17. HALDOL [Suspect]
     Indication: NAUSEA
     Dosage: 2 MG, ALTERNATE DAY
     Route: 048
     Dates: start: 20091112, end: 20091113
  18. OXYCONTIN [Concomitant]
     Dosage: UNK
     Dates: start: 20091109, end: 20091113
  19. PRIMPERAN TAB [Concomitant]
     Dosage: UNK
     Dates: start: 20091110, end: 20091113
  20. ETOPOSIDE [Suspect]
     Indication: EXTRAGONADAL PRIMARY GERM CELL TUMOUR MIXED STAGE I
     Dosage: 770 MG, 1X/DAY
     Route: 042
     Dates: start: 20091109, end: 20091111
  21. TOPALGIC [Suspect]
     Indication: PAIN
     Dosage: 50 MG, 3X/DAY
     Route: 048
     Dates: start: 20091113, end: 20091113
  22. ORAMORPH SR [Concomitant]
     Dosage: UNK
     Dates: start: 20091110, end: 20091113
  23. ONDANSETRON [Concomitant]
     Dosage: UNK
     Dates: start: 20091111
  24. HYDROCORTISONE [Concomitant]
     Dosage: UNK
     Dates: start: 20091113, end: 20091113
  25. EMEND [Suspect]
     Dosage: 125 MG, 1X/DAY
     Route: 048
     Dates: start: 20091109, end: 20091111
  26. EMEND [Suspect]
     Dosage: 80 MG, 1X/DAY
     Route: 048
     Dates: start: 20091110, end: 20091113
  27. POLARAMINE [Suspect]
     Dosage: 1 DF, 5MG/1ML, 1X/DAY
     Route: 042
     Dates: start: 20091113, end: 20091113

REACTIONS (2)
  - FEBRILE BONE MARROW APLASIA [None]
  - ILEITIS [None]
